FAERS Safety Report 4474980-2 (Version None)
Quarter: 2004Q3

REPORT INFORMATION
  Report Type: 
  Country: None (occurrence: None)
  Receive Date: 20040923
  Receipt Date: 20040628
  Transmission Date: 20050211
  Serious: No
  Sender: FDA-Public Use
  Company Number: USA040671310

PATIENT
  Age: 79 Year
  Sex: Female

DRUGS (5)
  1. FORTEO [Suspect]
     Indication: OSTEOPOROSIS
     Dates: start: 20040618, end: 20040625
  2. EVISTA [Suspect]
     Indication: OSTEOPOROSIS
     Dates: start: 20020101, end: 20040601
  3. GLUCOSAMINE CHONDROITIN [Concomitant]
  4. CALTRATE + D [Concomitant]
  5. MAGNESIUM (MAGNESIUM ASPARTATE) [Concomitant]

REACTIONS (4)
  - ANXIETY [None]
  - BLOOD PRESSURE INCREASED [None]
  - DRUG INEFFECTIVE [None]
  - INJECTION SITE HAEMORRHAGE [None]
